FAERS Safety Report 5256956-0 (Version None)
Quarter: 2007Q1

REPORT INFORMATION
  Report Type: 
  Country: None (occurrence: None)
  Receive Date: 20070305
  Receipt Date: 20070305
  Transmission Date: 20070707
  Serious: Yes (Other)
  Sender: FDA-Public Use
  Company Number: None

PATIENT
  Age: 43 Year
  Sex: Female
  Weight: 71.6683 kg

DRUGS (1)
  1. AMBIEN [Suspect]
     Indication: SLEEP DISORDER
     Dosage: 10 MG EVERY NIGHT PO
     Route: 048
     Dates: start: 20070115, end: 20070223

REACTIONS (8)
  - ABDOMINAL PAIN UPPER [None]
  - FEELING ABNORMAL [None]
  - FEELING COLD [None]
  - INSOMNIA [None]
  - LOGORRHOEA [None]
  - PHARMACEUTICAL PRODUCT COMPLAINT [None]
  - SUICIDAL IDEATION [None]
  - WEIGHT DECREASED [None]
